FAERS Safety Report 7417268 (Version 6)
Quarter: 2013Q2

REPORT INFORMATION
  Report Type: Report from Study
  Country: CA (occurrence: CA)
  Receive Date: 20100611
  Receipt Date: 20130412
  Transmission Date: 20140414
  Serious: Yes (Hospitalization, Other)
  Sender: FDA-Public Use
  Company Number: CA-ABBOTT-10P-028-0648995-02

PATIENT
  Age: 37 Year
  Sex: Male
  Weight: 64 kg

DRUGS (19)
  1. HUMIRA [Suspect]
     Indication: CROHN^S DISEASE
     Route: 058
     Dates: start: 20090107, end: 20100120
  2. HUMIRA [Suspect]
     Route: 058
     Dates: start: 20100602
  3. PREDNISONE [Concomitant]
     Indication: CROHN^S DISEASE
     Dosage: TAPERED
     Route: 048
     Dates: end: 200810
  4. PREDNISONE [Concomitant]
     Indication: CROHN^S DISEASE
     Route: 048
     Dates: start: 20091203, end: 20091216
  5. PREDNISONE [Concomitant]
     Route: 048
     Dates: start: 20091217, end: 20091230
  6. PREDNISONE [Concomitant]
     Route: 048
     Dates: start: 20100826, end: 20100905
  7. PREDNISONE [Concomitant]
     Route: 048
     Dates: start: 20100907, end: 20101004
  8. PREDNISONE [Concomitant]
     Route: 048
     Dates: start: 20101005, end: 20101101
  9. PREDNISONE [Concomitant]
     Route: 048
     Dates: start: 20101102, end: 20101129
  10. AZATHIOPRINE [Concomitant]
     Indication: CROHN^S DISEASE
     Dates: start: 1996, end: 20091202
  11. AZATHIOPRINE [Concomitant]
     Dates: start: 20091203
  12. CIPRO [Concomitant]
     Indication: CROHN^S DISEASE
     Dates: start: 200803, end: 201103
  13. FLAGYL [Concomitant]
     Indication: ANAL ABSCESS
     Dates: start: 20091121, end: 201007
  14. MORPHINE [Concomitant]
     Indication: PAIN
     Dates: start: 200809, end: 20110515
  15. MORPHINE [Concomitant]
     Indication: CROHN^S DISEASE
  16. SOLUMEDROL [Concomitant]
     Indication: INTESTINAL OBSTRUCTION
     Dates: start: 20090813, end: 20090814
  17. SOLUMEDROL [Concomitant]
     Indication: CROHN^S DISEASE
  18. DIAZEPAM [Concomitant]
     Indication: SEDATION
     Dates: start: 20091118, end: 20091118
  19. DIAZEPAM [Concomitant]
     Indication: SIGMOIDOSCOPY

REACTIONS (2)
  - Fistula [Recovered/Resolved]
  - Anal abscess [Recovered/Resolved]
